FAERS Safety Report 15074765 (Version 1)
Quarter: 2018Q2

REPORT INFORMATION
  Report Type: Spontaneous
  Country: US (occurrence: US)
  Receive Date: 20180627
  Receipt Date: 20180627
  Transmission Date: 20180711
  Serious: Yes (Other)
  Sender: FDA-Public Use
  Company Number: US-SAOL THERAPEUTICS-2017SAO01282

PATIENT
  Age: 11 Year
  Sex: Female
  Weight: 28.6 kg

DRUGS (1)
  1. LIORESAL [Suspect]
     Active Substance: BACLOFEN
     Dosage: 912.1 ?G, \DAY
     Route: 037
     Dates: start: 20170509

REACTIONS (2)
  - Muscle spasticity [Unknown]
  - Device dislocation [Unknown]

NARRATIVE: CASE EVENT DATE: 20170606
